FAERS Safety Report 5941260-5 (Version None)
Quarter: 2008Q4

REPORT INFORMATION
  Report Type: 
  Country: None (occurrence: None)
  Receive Date: 20081103
  Receipt Date: 20081103
  Transmission Date: 20090506
  Serious: Yes (Hospitalization, Other)
  Sender: FDA-Public Use
  Company Number: None

PATIENT
  Sex: Female
  Weight: 45.3597 kg

DRUGS (1)
  1. ROPINIROLE [Suspect]
     Indication: DYSTONIA
     Dosage: 6 MG 3 TIMES A DAY PO
     Route: 048
     Dates: start: 20081027, end: 20081030

REACTIONS (2)
  - HALLUCINATION [None]
  - OVERDOSE [None]
